FAERS Safety Report 21087214 (Version 2)
Quarter: 2022Q3

REPORT INFORMATION
  Report Type: Spontaneous
  Country: JP (occurrence: JP)
  Receive Date: 20220715
  Receipt Date: 20220808
  Transmission Date: 20221027
  Serious: Yes (Death)
  Sender: FDA-Public Use
  Company Number: JP-JNJFOC-20220724857

PATIENT
  Age: 53 Year
  Sex: Female
  Weight: 39.6 kg

DRUGS (14)
  1. UPTRAVI [Suspect]
     Active Substance: SELEXIPAG
     Indication: Systemic scleroderma
     Route: 048
     Dates: start: 20170916, end: 20180125
  2. UPTRAVI [Suspect]
     Active Substance: SELEXIPAG
     Route: 048
     Dates: start: 20180126, end: 20180304
  3. UPTRAVI [Suspect]
     Active Substance: SELEXIPAG
     Route: 048
     Dates: start: 20180305, end: 20210726
  4. ADCIRCA [Concomitant]
     Active Substance: TADALAFIL
     Indication: Systemic scleroderma
     Dates: end: 20170919
  5. URSO [Concomitant]
     Active Substance: URSODIOL
     Indication: Prophylaxis
  6. TRACLEER [Concomitant]
     Active Substance: BOSENTAN
     Indication: Systemic scleroderma
  7. PRAMIEL [METOCLOPRAMIDE] [Concomitant]
     Dates: end: 20170920
  8. PREDONINE [Concomitant]
     Active Substance: PREDNISOLONE
     Indication: Systemic scleroderma
  9. MOSAPRIDE CITRATE DIHYDRATE [Concomitant]
     Active Substance: MOSAPRIDE CITRATE DIHYDRATE
     Dates: end: 20170920
  10. WARFARIN POTASSIUM [Concomitant]
     Active Substance: WARFARIN POTASSIUM
  11. RABEPRAZOLE SODIUM [Concomitant]
     Active Substance: RABEPRAZOLE SODIUM
     Dates: end: 20170920
  12. PROSTANDIN [ALPROSTADIL ALFADEX] [Concomitant]
     Indication: Systemic scleroderma
  13. ADEMPAS [Concomitant]
     Active Substance: RIOCIGUAT
     Indication: Systemic scleroderma
     Dates: start: 20170920
  14. NEXIUM [Concomitant]
     Active Substance: ESOMEPRAZOLE MAGNESIUM
     Dates: start: 20170921, end: 20171212

REACTIONS (1)
  - Systemic scleroderma [Fatal]
